FAERS Safety Report 5860133-X (Version None)
Quarter: 2008Q3

REPORT INFORMATION
  Report Type: 
  Country: None (occurrence: None)
  Receive Date: 20080827
  Receipt Date: 20080815
  Transmission Date: 20090109
  Serious: Yes (Hospitalization)
  Sender: FDA-Public Use
  Company Number: JP-SANOFI-SYNTHELABO-A01200809832

PATIENT
  Age: 77 Year
  Sex: Male
  Weight: 51 kg

DRUGS (1)
  1. PLAVIX [Suspect]
     Indication: PERCUTANEOUS CORONARY INTERVENTION
     Dosage: 75 MG
     Route: 048
     Dates: start: 20080715, end: 20080728

REACTIONS (3)
  - COAGULOPATHY [None]
  - LIVER DISORDER [None]
  - PYREXIA [None]
